FAERS Safety Report 22959072 (Version 2)
Quarter: 2023Q4

REPORT INFORMATION
  Report Type: Spontaneous
  Country: US (occurrence: US)
  Receive Date: 20230919
  Receipt Date: 20231030
  Transmission Date: 20240109
  Serious: No
  Sender: FDA-Public Use
  Company Number: US-JNJFOC-20230929019

PATIENT
  Age: 46 Year
  Sex: Male

DRUGS (1)
  1. DARZALEX [Suspect]
     Active Substance: DARATUMUMAB
     Indication: Plasma cell myeloma
     Dosage: STRENGTH- 100 AND 400 (MILLIGRAMS)?THE LOT NUMBER AND EXPIRATION DATE PROVIDED IS FOR THE 100MG VIAL
     Route: 065

REACTIONS (5)
  - Product container issue [Unknown]
  - Hypersomnia [Unknown]
  - Hyperhidrosis [Unknown]
  - Accidental exposure to product [Unknown]
  - Product dose omission issue [Unknown]

NARRATIVE: CASE EVENT DATE: 20230905
